FAERS Safety Report 4299833-4 (Version None)
Quarter: 2004Q1

REPORT INFORMATION
  Report Type: 
  Country: None (occurrence: None)
  Receive Date: 20040219
  Receipt Date: 20040212
  Transmission Date: 20041129
  Serious: Yes (Other)
  Sender: FDA-Public Use
  Company Number: WAES 0402CHE00026

PATIENT
  Age: 46 Year
  Sex: Male
  Weight: 80 kg

DRUGS (6)
  1. CALCITRIOL [Concomitant]
     Route: 048
  2. CALCIUM (UNSPECIFIED) [Concomitant]
     Route: 048
  3. DARBEPOETIN ALFA [Suspect]
     Indication: RENAL FAILURE ACUTE
     Route: 058
     Dates: start: 20030425, end: 20030425
  4. HYZAAR [Suspect]
     Route: 048
  5. METOPROLOL [Concomitant]
     Route: 048
  6. SODIUM BICARBONATE [Concomitant]
     Route: 048

REACTIONS (3)
  - DERMATITIS ALLERGIC [None]
  - HAEMOGLOBIN DECREASED [None]
  - PRURITUS [None]
